FAERS Safety Report 7028570-8 (Version None)
Quarter: 2010Q4

REPORT INFORMATION
  Report Type: 
  Country: None (occurrence: None)
  Receive Date: 20101005
  Receipt Date: 20100927
  Transmission Date: 20110411
  Serious: Yes (Other)
  Sender: FDA-Public Use
  Company Number: US-JNJFOC-20100908992

PATIENT
  Age: 9 Decade
  Sex: Male

DRUGS (1)
  1. LEVAQUIN [Suspect]
     Indication: GALLBLADDER DISORDER
     Route: 048

REACTIONS (3)
  - ARTHRALGIA [None]
  - FOOT DEFORMITY [None]
  - JOINT SWELLING [None]
